FAERS Safety Report 5581624-5 (Version None)
Quarter: 2008Q1

REPORT INFORMATION
  Report Type: 
  Country: None (occurrence: None)
  Receive Date: 20080102
  Receipt Date: 20080102
  Transmission Date: 20080703
  Serious: Yes (Hospitalization)
  Sender: FDA-Public Use
  Company Number: None

PATIENT
  Age: 25 Year
  Sex: Male

DRUGS (1)
  1. ACETAMINOPHEN/BUTALBITAL/CAFFEINE [Suspect]
     Indication: MIGRAINE
     Dosage: 2TAB PRN PO
     Route: 048
     Dates: start: 20071022, end: 20071023

REACTIONS (1)
  - DELIRIUM [None]
